FAERS Safety Report 8094974-8 (Version None)
Quarter: 2012Q1

REPORT INFORMATION
  Report Type: 
  Country: None (occurrence: None)
  Receive Date: 20120131
  Receipt Date: 20111108
  Transmission Date: 20120608
  Serious: No
  Sender: FDA-Public Use
  Company Number: US-ABBOTT-11P-163-0872875-00

PATIENT
  Sex: Female
  Weight: 59.928 kg

DRUGS (2)
  1. CREON [Suspect]
     Indication: PANCREATIC DISORDER
     Dosage: 2 WITH MEAL, 1 SNACK
     Dates: start: 20110201
  2. OTHER UNKNOWN MEDICATIONS [Concomitant]
     Indication: PRODUCT USED FOR UNKNOWN INDICATION

REACTIONS (1)
  - ABDOMINAL PAIN [None]
